FAERS Safety Report 4515259-X (Version None)
Quarter: 2004Q4

REPORT INFORMATION
  Report Type: 
  Country: None (occurrence: None)
  Receive Date: 20041130
  Receipt Date: 20041130
  Transmission Date: 20050328
  Serious: Yes (Death)
  Sender: FDA-Public Use
  Company Number: None

PATIENT
  Sex: Male

DRUGS (9)
  1. PROZAC [Suspect]
     Indication: ALCOHOLISM
     Dates: start: 20010618
  2. PROZAC [Suspect]
     Indication: OBSESSIVE-COMPULSIVE DISORDER
     Dates: start: 20010618
  3. PROZAC [Suspect]
     Indication: ALCOHOLISM
     Dates: start: 20021031
  4. PROZAC [Suspect]
     Indication: OBSESSIVE-COMPULSIVE DISORDER
     Dates: start: 20021031
  5. ZYPREXA [Concomitant]
  6. GEODON [Concomitant]
  7. NEURONTIN [Concomitant]
  8. PROZAC [Concomitant]
  9. ATIVAN [Concomitant]

REACTIONS (2)
  - DRUG TOXICITY [None]
  - HEPATIC STEATOSIS [None]
